FAERS Safety Report 25867238 (Version 2)
Quarter: 2025Q4

REPORT INFORMATION
  Report Type: Spontaneous
  Country: EU (occurrence: EU)
  Receive Date: 20251001
  Receipt Date: 20251007
  Transmission Date: 20260117
  Serious: Yes (Other)
  Sender: SANDOZ
  Company Number: EU-MLMSERVICE-20250912-PI643247-00218-2

PATIENT
  Age: 30 Year
  Sex: Male

DRUGS (35)
  1. ADALIMUMAB [Suspect]
     Active Substance: ADALIMUMAB
     Indication: Arthritis bacterial
     Dosage: 40 MG, Q2W
     Route: 058
     Dates: start: 2013
  2. ADALIMUMAB [Suspect]
     Active Substance: ADALIMUMAB
     Indication: Arthritis bacterial
     Dosage: 80 MILLIGRAM (EVERY 10-14 DAYS)
     Route: 058
  3. ADALIMUMAB [Suspect]
     Active Substance: ADALIMUMAB
     Indication: PASH syndrome
     Dosage: 80 MILLIGRAM (EVERY 10-14 DAYS,  (INTENSIFIED DOSE))
     Route: 065
  4. ADALIMUMAB [Suspect]
     Active Substance: ADALIMUMAB
     Indication: Hidradenitis
     Dosage: UNK
     Route: 065
  5. ADALIMUMAB [Suspect]
     Active Substance: ADALIMUMAB
     Indication: Acne
  6. ADALIMUMAB [Suspect]
     Active Substance: ADALIMUMAB
     Indication: Pyoderma gangrenosum
  7. ACITRETIN [Suspect]
     Active Substance: ACITRETIN
     Indication: Hidradenitis
     Dosage: UNK
     Route: 065
  8. ACITRETIN [Suspect]
     Active Substance: ACITRETIN
     Indication: Acne
  9. ACITRETIN [Suspect]
     Active Substance: ACITRETIN
     Indication: Arthritis bacterial
  10. ACITRETIN [Suspect]
     Active Substance: ACITRETIN
     Indication: Pyoderma gangrenosum
  11. DAPSONE [Suspect]
     Active Substance: DAPSONE
     Indication: Hidradenitis
     Dosage: 5 %
     Route: 065
  12. DAPSONE [Suspect]
     Active Substance: DAPSONE
     Indication: Acne
  13. DAPSONE [Suspect]
     Active Substance: DAPSONE
     Indication: Arthritis bacterial
  14. DAPSONE [Suspect]
     Active Substance: DAPSONE
     Indication: Pyoderma gangrenosum
  15. ETANERCEPT [Suspect]
     Active Substance: ETANERCEPT
     Indication: Arthritis bacterial
     Dosage: 50 MILLIGRAM, QWK
     Route: 065
  16. ETANERCEPT [Suspect]
     Active Substance: ETANERCEPT
     Indication: PASH syndrome
  17. METHOTREXATE [Suspect]
     Active Substance: METHOTREXATE
     Indication: Product used for unknown indication
     Dosage: 15 MG, QW
     Route: 065
  18. METHOTREXATE [Suspect]
     Active Substance: METHOTREXATE
     Indication: Prophylaxis
  19. ACITRETIN [Concomitant]
     Active Substance: ACITRETIN
     Indication: Arthritis bacterial
     Dosage: UNK
     Route: 065
  20. ACITRETIN [Concomitant]
     Active Substance: ACITRETIN
     Indication: PASH syndrome
  21. CLINDAMYCIN [Concomitant]
     Active Substance: CLINDAMYCIN
     Indication: PASH syndrome
     Dosage: UNK
     Route: 061
  22. CLINDAMYCIN [Concomitant]
     Active Substance: CLINDAMYCIN
     Indication: Arthritis bacterial
  23. CLOBETASOL [Concomitant]
     Active Substance: CLOBETASOL
     Indication: Arthritis bacterial
     Dosage: UNK
     Route: 061
  24. CLOBETASOL [Concomitant]
     Active Substance: CLOBETASOL
     Indication: PASH syndrome
  25. DAPSONE [Concomitant]
     Active Substance: DAPSONE
     Indication: PASH syndrome
     Dosage: UNK
     Route: 065
  26. DAPSONE [Concomitant]
     Active Substance: DAPSONE
     Indication: Arthritis bacterial
  27. ISOTRETINOIN [Concomitant]
     Active Substance: ISOTRETINOIN
     Indication: Arthritis bacterial
     Dosage: UNK
     Route: 065
  28. ISOTRETINOIN [Concomitant]
     Active Substance: ISOTRETINOIN
     Indication: Acne
  29. ISOTRETINOIN [Concomitant]
     Active Substance: ISOTRETINOIN
     Indication: PASH syndrome
  30. METHOTREXATE [Concomitant]
     Active Substance: METHOTREXATE
     Indication: Prophylaxis
     Dosage: 5 MILLIGRAM, QWK
     Route: 065
  31. PREDNISOLONE [Concomitant]
     Active Substance: PREDNISOLONE
     Indication: PASH syndrome
     Dosage: UNK
     Route: 065
  32. PREDNISOLONE [Concomitant]
     Active Substance: PREDNISOLONE
     Indication: Arthritis bacterial
  33. PREDNISOLONE [Concomitant]
     Active Substance: PREDNISOLONE
     Indication: Product used for unknown indication
  34. SECUKINUMAB [Concomitant]
     Active Substance: SECUKINUMAB
     Indication: Arthritis bacterial
     Dosage: UNK, Q4WK (150-300 MG)
     Route: 065
  35. SECUKINUMAB [Concomitant]
     Active Substance: SECUKINUMAB
     Indication: PASH syndrome

REACTIONS (8)
  - PASH syndrome [Recovering/Resolving]
  - Arthritis bacterial [Recovering/Resolving]
  - Oligoarthritis [Unknown]
  - Acne cystic [Unknown]
  - Hidradenitis [Unknown]
  - Nausea [Unknown]
  - Drug ineffective for unapproved indication [Unknown]
  - Off label use [Unknown]

NARRATIVE: CASE EVENT DATE: 20170101
